FAERS Safety Report 13128352 (Version 4)
Quarter: 2017Q1

REPORT INFORMATION
  Report Type: Spontaneous
  Country: US (occurrence: US)
  Receive Date: 20170118
  Receipt Date: 20170227
  Transmission Date: 20170428
  Serious: Yes (Death, Hospitalization)
  Sender: FDA-Public Use
  Company Number: US-ACTELION-A-NJ2017-148528

PATIENT
  Age: 60 Year
  Sex: Female
  Weight: 93.42 kg

DRUGS (1)
  1. VELETRI [Suspect]
     Active Substance: EPOPROSTENOL
     Indication: PULMONARY ARTERIAL HYPERTENSION
     Dosage: 14 NG/KG, PER MIN
     Route: 042
     Dates: start: 20150922

REACTIONS (13)
  - Nausea [Unknown]
  - Cellulitis [Unknown]
  - Blood culture positive [Unknown]
  - Catheter placement [Unknown]
  - Swelling [Unknown]
  - Cardiac valve vegetation [Fatal]
  - Embolism [Fatal]
  - Bacterial sepsis [Unknown]
  - Device related infection [Unknown]
  - Peripheral swelling [Unknown]
  - Device malfunction [Unknown]
  - Endocarditis [Fatal]
  - Gastrointestinal ischaemia [Fatal]

NARRATIVE: CASE EVENT DATE: 20170217
